FAERS Safety Report 9362147 (Version 2)
Quarter: 2013Q3

REPORT INFORMATION
  Report Type: Report from Study
  Country: JP (occurrence: JP)
  Receive Date: 20130621
  Receipt Date: 20130722
  Transmission Date: 20140515
  Serious: Yes (Death)
  Sender: FDA-Public Use
  Company Number: JP-009507513-1306JPN010373

PATIENT
  Age: 77 Year
  Sex: Female

DRUGS (10)
  1. DIAZOXIDE CAPSULES 25 MG ^MSD^ [Suspect]
     Indication: HYPOGLYCAEMIA
     Dosage: ONE 25 MG50MG OF EVENING IN MORNING
     Route: 048
     Dates: start: 20130323, end: 20130324
  2. DIAZOXIDE CAPSULES 25 MG ^MSD^ [Suspect]
     Dosage: 75 MG, BID
     Route: 048
     Dates: start: 20130307, end: 20130318
  3. DIAZOXIDE CAPSULES 25 MG ^MSD^ [Suspect]
     Dosage: 50 MG, BID
     Route: 048
     Dates: start: 20130319, end: 20130322
  4. DECADRON ELIXIR [Concomitant]
     Indication: HYPOGLYCAEMIA
     Dosage: 0.25 MG, QD, DIVIDED DOSE FREQUENCY U
     Route: 048
     Dates: start: 20110708, end: 20130305
  5. LANIRAPID [Concomitant]
     Indication: CARDIAC FAILURE
     Dosage: 0.25 MG, QD, DIVIDED DOSE FREQUENCY U
     Route: 048
     Dates: end: 20130323
  6. FLUITRAN [Concomitant]
     Indication: CARDIAC FAILURE
     Dosage: 1 MG, QD, DIVIDED DOSE FREQUENCY UNKNOWN
     Route: 048
     Dates: end: 20130323
  7. LASIX (FUROSEMIDE) [Concomitant]
     Indication: CARDIAC FAILURE
     Dosage: 100 MG, QD, DIVIDED FREQUENCY U
     Route: 048
     Dates: end: 20130323
  8. ALDACTONE A [Concomitant]
     Indication: CARDIAC FAILURE
     Dosage: 25 MG, QD, DIVIDED DOSE FREQUENCY U
     Route: 048
     Dates: end: 20130323
  9. VASOLAN [Concomitant]
     Indication: ATRIAL FIBRILLATION
     Dosage: 40 MG, QD, DIVIDED FREQUENCY U
     Route: 048
     Dates: end: 20130323
  10. WARFARIN SODIUM [Concomitant]
     Indication: ATRIAL FIBRILLATION
     Dosage: 1.5 MG, QD, DIVIDED FREQUENCY U
     Route: 048
     Dates: end: 20130323

REACTIONS (1)
  - Cardiac failure [Fatal]
